FAERS Safety Report 24214894 (Version 1)
Quarter: 2024Q3

REPORT INFORMATION
  Report Type: Spontaneous
  Country: US (occurrence: US)
  Receive Date: 20240815
  Receipt Date: 20240815
  Transmission Date: 20241017
  Serious: No
  Sender: BRISTOL MYERS SQUIBB
  Company Number: US-BRISTOL-MYERS SQUIBB COMPANY-2024-128174

PATIENT
  Age: 41 Year
  Sex: Female

DRUGS (1)
  1. ONUREG [Suspect]
     Active Substance: AZACITIDINE
     Indication: Acute leukaemia
     Dosage: FREQ- QD FOR 5 DAYS OF THE 28 DAY CYCLE
     Route: 048

REACTIONS (1)
  - Off label use [Unknown]
